FAERS Safety Report 5363414-1 (Version None)
Quarter: 2007Q2

REPORT INFORMATION
  Report Type: 
  Country: None (occurrence: None)
  Receive Date: 20070530
  Receipt Date: 20070102
  Transmission Date: 20071010
  Serious: No
  Sender: FDA-Public Use
  Company Number: 2007PV027794

PATIENT
  Age: 69 Year
  Sex: Female
  Weight: 68.0396 kg

DRUGS (16)
  1. BYETTA [Suspect]
     Indication: DIABETES MELLITUS NON-INSULIN-DEPENDENT
     Dosage: 5 MCG; 5 MCG : SC
     Route: 058
     Dates: start: 20061130, end: 20060101
  2. BYETTA [Suspect]
     Indication: DIABETES MELLITUS NON-INSULIN-DEPENDENT
     Dosage: 5 MCG; 5 MCG : SC
     Route: 058
     Dates: start: 20060801, end: 20061001
  3. BYETTA [Suspect]
     Dosage: 10 MCG; SC
     Route: 058
     Dates: start: 20060101
  4. TOBRADEX [Suspect]
     Indication: DARK CIRCLES UNDER EYES
     Dates: start: 20060915
  5. GLIPIZIDE [Concomitant]
  6. LIPITOR [Concomitant]
  7. METFORMIN HCL [Concomitant]
  8. NEURONTIN [Concomitant]
  9. COZAAR [Concomitant]
  10. NIASPAN [Concomitant]
  11. ASPIRIN [Concomitant]
  12. VITAMIN D [Concomitant]
  13. FISH OIL [Concomitant]
  14. CALCIUM CHLORIDE [Concomitant]
  15. MAGNESIUM SULFATE [Concomitant]
  16. ZOCOR [Concomitant]

REACTIONS (4)
  - BLEPHARITIS [None]
  - HUNGER [None]
  - LIP SWELLING [None]
  - PRURITUS [None]
